FAERS Safety Report 6567555-2 (Version None)
Quarter: 2010Q1

REPORT INFORMATION
  Report Type: 
  Country: None (occurrence: None)
  Receive Date: 20100202
  Receipt Date: 20100126
  Transmission Date: 20100710
  Serious: Yes (Death, Hospitalization)
  Sender: FDA-Public Use
  Company Number: IT-GENENTECH-297484

PATIENT
  Sex: Male

DRUGS (3)
  1. MABTHERA [Suspect]
     Indication: RHEUMATOID ARTHRITIS
     Dosage: 2 G, UNK
     Route: 042
     Dates: start: 20090601, end: 20090601
  2. ARAVA [Concomitant]
     Indication: DRUG USE FOR UNKNOWN INDICATION
     Dosage: 20 MG, UNK
     Route: 048
     Dates: start: 20070301, end: 20091130
  3. DELTACORTENE [Concomitant]
     Indication: DRUG USE FOR UNKNOWN INDICATION
     Dosage: 25 MG, UNK
     Route: 048
     Dates: start: 20090801, end: 20091130

REACTIONS (3)
  - ERYSIPELAS [None]
  - IMMUNODEFICIENCY [None]
  - SEPSIS [None]
